FAERS Safety Report 18856402 (Version 1)
Quarter: 2021Q1

REPORT INFORMATION
  Report Type: Spontaneous
  Country: US (occurrence: US)
  Receive Date: 20210207
  Receipt Date: 20210207
  Transmission Date: 20210420
  Serious: No
  Sender: FDA-Public Use
  Company Number: US-PERRIGO-20US002432

PATIENT
  Sex: Female

DRUGS (2)
  1. PROPRANOLOL [Concomitant]
     Active Substance: PROPRANOLOL HYDROCHLORIDE
     Indication: PROPHYLAXIS
     Dosage: UNK, UNK
     Route: 048
  2. TRETINOIN. [Suspect]
     Active Substance: TRETINOIN
     Indication: ROSACEA
     Dosage: PEA SIZE AMOUNT, QHS PRN
     Route: 061
     Dates: start: 201901, end: 202001

REACTIONS (6)
  - Application site exfoliation [Recovering/Resolving]
  - Application site urticaria [Recovered/Resolved]
  - Condition aggravated [Recovered/Resolved]
  - Application site discolouration [Recovered/Resolved]
  - Off label use [Recovered/Resolved]
  - Application site dryness [Recovering/Resolving]

NARRATIVE: CASE EVENT DATE: 2019
